FAERS Safety Report 10919189 (Version 1)
Quarter: 2015Q1

REPORT INFORMATION
  Report Type: Spontaneous
  Country: AU (occurrence: AU)
  Receive Date: 20150316
  Receipt Date: 20150316
  Transmission Date: 20150721
  Serious: Yes (Death, Other)
  Sender: FDA-Public Use
  Company Number: AU-MYLANLABS-2015M1008270

PATIENT

DRUGS (9)
  1. ZOLEDRONIC ACID [Concomitant]
     Active Substance: ZOLEDRONIC ACID
     Route: 065
  2. PARACETAMOL [Concomitant]
     Active Substance: ACETAMINOPHEN
     Route: 065
  3. EVEROLIMUS [Suspect]
     Active Substance: EVEROLIMUS
     Route: 065
  4. RAMIPRIL. [Concomitant]
     Active Substance: RAMIPRIL
     Route: 065
  5. SUNITINIB [Suspect]
     Active Substance: SUNITINIB
     Route: 065
  6. ALLOPURINOL. [Concomitant]
     Active Substance: ALLOPURINOL
     Route: 065
  7. TEMSIROLIMUS [Suspect]
     Active Substance: TEMSIROLIMUS
     Route: 065
  8. SORAFENIB [Suspect]
     Active Substance: SORAFENIB
     Route: 065
  9. DOXAZOSIN [Concomitant]
     Active Substance: DOXAZOSIN\DOXAZOSIN MESYLATE
     Route: 065

REACTIONS (14)
  - Myocardial infarction [Fatal]
  - Trigeminal neuralgia [Unknown]
  - Pericardial effusion [Unknown]
  - Anuria [Unknown]
  - Fatigue [Unknown]
  - Dyspnoea [Unknown]
  - Cardiac arrest [Unknown]
  - Stomatitis [Unknown]
  - Bradycardia [Unknown]
  - Azotaemia [Unknown]
  - Hypotension [Unknown]
  - Decreased appetite [Unknown]
  - Arrhythmia [Unknown]
  - Ascites [Unknown]
